FAERS Safety Report 4998528-9 (Version None)
Quarter: 2006Q2

REPORT INFORMATION
  Report Type: 
  Country: None (occurrence: None)
  Receive Date: 20060508
  Receipt Date: 20060421
  Transmission Date: 20061013
  Serious: Yes (Other)
  Sender: FDA-Public Use
  Company Number: 2006047387

PATIENT
  Age: 69 Year
  Sex: Male
  Weight: 70 kg

DRUGS (10)
  1. SINEQUAN [Suspect]
     Indication: INSOMNIA
     Dosage: 10 MG (10 MG, NOCTE), ORAL
     Route: 048
  2. METHOTREXATE [Suspect]
     Indication: SJOGREN'S SYNDROME
     Dosage: (5 MG, 1 IN 1 WK), ORAL
     Route: 048
  3. EZETROL (EZETIMIBE) [Concomitant]
  4. PLENDIL [Concomitant]
  5. MICARDIS [Concomitant]
  6. FOLIC ACID [Concomitant]
  7. FISH OIL (FISH OIL) [Concomitant]
  8. MAGNESIUM (MAGNESIUM) [Concomitant]
  9. VITAMIN D [Concomitant]
  10. NEXIUM [Concomitant]

REACTIONS (2)
  - HEPATIC CYST [None]
  - INCREASED TENDENCY TO BRUISE [None]
